FAERS Safety Report 9752275 (Version 1)
Quarter: 2013Q4

REPORT INFORMATION
  Report Type: Spontaneous
  Country: US (occurrence: None)
  Receive Date: 20131211
  Receipt Date: 20131211
  Transmission Date: 20140711
  Serious: No
  Sender: FDA-Public Use
  Company Number: None

PATIENT
  Sex: 0

DRUGS (1)
  1. MULTAQ [Suspect]
     Dates: start: 201307, end: 201308

REACTIONS (1)
  - Pulmonary oedema [None]
